FAERS Safety Report 20035658 (Version 3)
Quarter: 2021Q4

REPORT INFORMATION
  Report Type: Spontaneous
  Country: US (occurrence: US)
  Receive Date: 20211104
  Receipt Date: 20211213
  Transmission Date: 20220303
  Serious: No
  Sender: FDA-Public Use
  Company Number: US-009507513-2110USA006968

PATIENT
  Age: 25 Year
  Sex: Male

DRUGS (4)
  1. NOXAFIL [Suspect]
     Active Substance: POSACONAZOLE
     Indication: Hepatic candidiasis
     Dosage: UNK
  2. CEFTAROLINE [Concomitant]
     Active Substance: CEFTAROLINE
     Dosage: UNK
  3. DOXYCYCLINE [Concomitant]
     Active Substance: DOXYCYCLINE
     Dosage: UNK
  4. MICAFUNGIN [Concomitant]
     Active Substance: MICAFUNGIN
     Dosage: UNK

REACTIONS (1)
  - Product use in unapproved indication [Unknown]
